FAERS Safety Report 4744824-X (Version None)
Quarter: 2005Q3

REPORT INFORMATION
  Report Type: 
  Country: None (occurrence: None)
  Receive Date: 20050815
  Receipt Date: 20050620
  Transmission Date: 20060218
  Serious: Yes (Disabling)
  Sender: FDA-Public Use
  Company Number: US-GLAXOSMITHKLINE-A0563455A

PATIENT
  Age: 52 Year
  Sex: Male

DRUGS (3)
  1. LAMICTAL [Suspect]
     Indication: BIPOLAR DISORDER
     Route: 048
     Dates: start: 19990101, end: 20050101
  2. ATIVAN [Concomitant]
     Route: 048
     Dates: start: 20050101
  3. PARNATE [Concomitant]
     Dosage: 20MG THREE TIMES PER DAY
     Route: 048
     Dates: start: 20050101

REACTIONS (2)
  - APHASIA [None]
  - DYSCALCULIA [None]
